FAERS Safety Report 22539857 (Version 1)
Quarter: 2023Q2

REPORT INFORMATION
  Report Type: Spontaneous
  Country: US (occurrence: None)
  Receive Date: 20230607
  Receipt Date: 20230607
  Transmission Date: 20230722
  Serious: Yes (Death)
  Sender: FDA-Public Use
  Company Number: None

PATIENT
  Age: 26 Year
  Sex: Male

DRUGS (1)
  1. PHYTONADIONE [Suspect]
     Active Substance: PHYTONADIONE
     Indication: Cystic fibrosis
     Dosage: FREQUENCY : TWICE A WEEK;?OTHER ROUTE : GTUBE;?
     Route: 050
     Dates: start: 20220922, end: 20230601

REACTIONS (1)
  - Death [None]

NARRATIVE: CASE EVENT DATE: 20230601
